FAERS Safety Report 8998124 (Version 1)
Quarter: 2013Q1

REPORT INFORMATION
  Report Type: Spontaneous
  Country: US (occurrence: US)
  Receive Date: 20130104
  Receipt Date: 20130104
  Transmission Date: 20140127
  Serious: No
  Sender: FDA-Public Use
  Company Number: US-PFIZER INC-2013003175

PATIENT
  Age: 46 Year
  Sex: Female

DRUGS (1)
  1. ADVIL MIGRAINE [Suspect]
     Indication: MIGRAINE
     Dosage: UNK, ONCE A DAY
     Route: 048
     Dates: start: 201212, end: 201212

REACTIONS (1)
  - Drug ineffective [Unknown]
